FAERS Safety Report 8437190-X (Version None)
Quarter: 2012Q2

REPORT INFORMATION
  Report Type: 
  Country: None (occurrence: None)
  Receive Date: 20120614
  Receipt Date: 20120419
  Transmission Date: 20120825
  Serious: No
  Sender: FDA-Public Use
  Company Number: US-AMGEN-USASP2012015798

PATIENT
  Age: 53 Year
  Sex: Female
  Weight: 81.633 kg

DRUGS (1)
  1. PROLIA [Suspect]
     Indication: OSTEOPOROSIS POSTMENOPAUSAL
     Dosage: UNK
     Route: 030
     Dates: start: 20120316

REACTIONS (1)
  - ARTHRALGIA [None]
